FAERS Safety Report 22798945 (Version 4)
Quarter: 2023Q4

REPORT INFORMATION
  Report Type: Report from Study
  Country: GB (occurrence: GB)
  Receive Date: 20230808
  Receipt Date: 20231016
  Transmission Date: 20240110
  Serious: Yes (Other)
  Sender: FDA-Public Use
  Company Number: GB-AMGEN-GBRSL2023121910

PATIENT
  Age: 53 Year
  Sex: Male

DRUGS (1)
  1. ADALIMUMAB [Suspect]
     Active Substance: ADALIMUMAB
     Indication: Colitis ulcerative
     Dosage: 40 MILLIGRAM, Q2WK
     Route: 065
     Dates: start: 20230627, end: 2023

REACTIONS (8)
  - Renal impairment [Unknown]
  - Adverse drug reaction [Unknown]
  - Hyperhidrosis [Unknown]
  - Pyrexia [Unknown]
  - Tremor [Unknown]
  - Dizziness [Unknown]
  - Fatigue [Unknown]
  - Chest discomfort [Unknown]
